FAERS Safety Report 6870775 (Version 8)
Quarter: 2014Q1

REPORT INFORMATION
  Report Type: Spontaneous
  Country: US (occurrence: CH)
  Receive Date: 20060720
  Receipt Date: 20140122
  Transmission Date: 20141002
  Serious: Yes (Disabling, Other)
  Sender: FDA-Public Use
  Company Number: CH-PFIZER INC-2006086297

PATIENT
  Sex: Female
  Weight: 67 kg

DRUGS (8)
  1. DEPO-MEDROL [Suspect]
     Dosage: 80 MG, UNK
     Route: 037
     Dates: start: 19970307
  2. IMUREK [Concomitant]
     Dosage: 75 MG, 2X/DAY
  3. LIVIAL [Concomitant]
     Dosage: 2.5 MG, UNK
  4. AINS [Concomitant]
     Dosage: 500 MG, 2X/DAY
  5. CONDROSULF [Concomitant]
     Dosage: 800 MG, UNK
  6. DAFALGAN [Concomitant]
     Dosage: 1 GR PRN
  7. VITAMIN B12 [Concomitant]
     Dosage: 1000 MCG/MONTH
  8. TEMESTA [Concomitant]
     Dosage: 1 MG, AS NEEDED

REACTIONS (17)
  - Drug administration error [Recovering/Resolving]
  - Neuralgia [Not Recovered/Not Resolved]
  - Meningitis [Unknown]
  - Intervertebral disc protrusion [Not Recovered/Not Resolved]
  - Pain [Not Recovered/Not Resolved]
  - Tendonitis [Not Recovered/Not Resolved]
  - Formication [Not Recovered/Not Resolved]
  - Muscle spasms [Not Recovered/Not Resolved]
  - Fatigue [Not Recovered/Not Resolved]
  - Tinnitus [Unknown]
  - Antinuclear antibody increased [Unknown]
  - Sexual dysfunction [Unknown]
  - Constipation [Unknown]
  - Urinary incontinence [Unknown]
  - Hyperhidrosis [Unknown]
  - Headache [Unknown]
  - Skin discolouration [Unknown]
